FAERS Safety Report 23936083 (Version 1)
Quarter: 2024Q2

REPORT INFORMATION
  Report Type: Spontaneous
  Country: JP (occurrence: JP)
  Receive Date: 20240604
  Receipt Date: 20240604
  Transmission Date: 20240716
  Serious: Yes (Other)
  Sender: FDA-Public Use
  Company Number: JP-TEVA-VS-3182366

PATIENT
  Age: 8 Decade
  Sex: Female

DRUGS (2)
  1. AZILECT [Suspect]
     Active Substance: RASAGILINE MESYLATE
     Indication: Parkinson^s disease
     Route: 048
  2. AZILECT [Suspect]
     Active Substance: RASAGILINE MESYLATE
     Indication: Parkinson^s disease
     Route: 048

REACTIONS (2)
  - Hallucination [Recovering/Resolving]
  - Circadian rhythm sleep disorder [Unknown]

NARRATIVE: CASE EVENT DATE: 20240101
